FAERS Safety Report 5037673-9 (Version None)
Quarter: 2006Q2

REPORT INFORMATION
  Report Type: 
  Country: None (occurrence: None)
  Receive Date: 20060626
  Receipt Date: 20060626
  Transmission Date: 20061013
  Serious: Yes (Disabling)
  Sender: FDA-Public Use
  Company Number: None

PATIENT
  Age: 53 Year
  Sex: Male
  Weight: 68.0396 kg

DRUGS (1)
  1. PERIDEX [Suspect]
     Indication: GINGIVAL DISORDER
     Dosage: .15 ML ONCE @ NIGHT EVERY DAY
     Dates: start: 20030301

REACTIONS (1)
  - AGEUSIA [None]
